FAERS Safety Report 8159992-X (Version None)
Quarter: 2012Q1

REPORT INFORMATION
  Report Type: 
  Country: None (occurrence: None)
  Receive Date: 20120223
  Receipt Date: 20120220
  Transmission Date: 20120608
  Serious: Yes (Hospitalization)
  Sender: FDA-Public Use
  Company Number: US-GLAXOSMITHKLINE-A0966547A

PATIENT
  Age: 77 Year
  Sex: Female

DRUGS (4)
  1. BENADRYL [Concomitant]
  2. ASPIRIN [Concomitant]
  3. ADVAIR DISKUS 100/50 [Suspect]
     Indication: ASTHMA
     Dosage: 1PUFF TWICE PER DAY
     Route: 055
     Dates: start: 20110501
  4. CONCURRENT MEDICATIONS [Concomitant]

REACTIONS (6)
  - SLEEP DISORDER [None]
  - NAUSEA [None]
  - HYPERTENSION [None]
  - PRODUCT QUALITY ISSUE [None]
  - DYSPNOEA [None]
  - TREATMENT NONCOMPLIANCE [None]
